FAERS Safety Report 7003313-2 (Version None)
Quarter: 2010Q3

REPORT INFORMATION
  Report Type: 
  Country: None (occurrence: None)
  Receive Date: 20100920
  Receipt Date: 20100607
  Transmission Date: 20110219
  Serious: No
  Sender: FDA-Public Use
  Company Number: A0863343A

PATIENT
  Age: 45 Year
  Sex: Female

DRUGS (6)
  1. LAMICTAL [Suspect]
     Indication: EPILEPSY
     Dosage: 300MG PER DAY
     Route: 048
  2. COLESTIPOL HYDROCHLORIDE [Concomitant]
  3. TAGAMET [Concomitant]
  4. CLARITIN [Concomitant]
  5. VICODIN [Concomitant]
  6. ASCORBIC ACID [Concomitant]

REACTIONS (3)
  - ANXIETY [None]
  - DIZZINESS [None]
  - MEMORY IMPAIRMENT [None]
